FAERS Safety Report 13360290 (Version 1)
Quarter: 2017Q1

REPORT INFORMATION
  Report Type: Report from Study
  Country: US (occurrence: US)
  Receive Date: 20170322
  Receipt Date: 20170322
  Transmission Date: 20170429
  Serious: No
  Sender: FDA-Public Use
  Company Number: PHEH2017US008474

PATIENT
  Age: 38 Year
  Sex: Female

DRUGS (1)
  1. GILENYA [Suspect]
     Active Substance: FINGOLIMOD HYDROCHLORIDE
     Indication: RELAPSING-REMITTING MULTIPLE SCLEROSIS
     Dosage: UNK UNK, QD
     Route: 048
     Dates: start: 20170216, end: 20170220

REACTIONS (6)
  - Pain in jaw [Unknown]
  - Feeling abnormal [Unknown]
  - Ear pain [Unknown]
  - Facial pain [Unknown]
  - Headache [Unknown]
  - Fatigue [Unknown]

NARRATIVE: CASE EVENT DATE: 20170217
